FAERS Safety Report 25882654 (Version 2)
Quarter: 2025Q4

REPORT INFORMATION
  Report Type: Spontaneous
  Country: US (occurrence: US)
  Receive Date: 20251006
  Receipt Date: 20251106
  Transmission Date: 20260118
  Serious: No
  Sender: BRISTOL-MYERS SQUIBB COMPANY
  Company Number: US-BRISTOL-MYERS SQUIBB COMPANY-2025-135827

PATIENT
  Age: 66 Year
  Sex: Male
  Weight: 117.03 kg

DRUGS (1)
  1. POMALYST [Suspect]
     Active Substance: POMALIDOMIDE
     Indication: Product used for unknown indication
     Dosage: STRENGTH: 3 MG
     Route: 048

REACTIONS (4)
  - Diarrhoea [Recovering/Resolving]
  - Gastrointestinal disorder [Recovered/Resolved]
  - Influenza like illness [Recovered/Resolved]
  - Fatigue [Recovered/Resolved]

NARRATIVE: CASE EVENT DATE: 20210211
